FAERS Safety Report 8498218-4 (Version None)
Quarter: 2012Q3

REPORT INFORMATION
  Report Type: 
  Country: None (occurrence: None)
  Receive Date: 20120709
  Receipt Date: 20120620
  Transmission Date: 20120928
  Serious: No
  Sender: FDA-Public Use
  Company Number: US-AMGEN-USASP2012038268

PATIENT
  Age: 47 Year
  Sex: Female

DRUGS (2)
  1. TREXALL [Concomitant]
     Dosage: 8 MG, UNK
  2. ENBREL [Suspect]
     Indication: RHEUMATOID ARTHRITIS
     Dosage: 50 MG, QWK
     Dates: start: 20120503

REACTIONS (13)
  - PAIN [None]
  - NASAL DISCOMFORT [None]
  - IMPAIRED HEALING [None]
  - ARTHRALGIA [None]
  - SWELLING [None]
  - STRESS [None]
  - NASAL CONGESTION [None]
  - FATIGUE [None]
  - MUSCULOSKELETAL STIFFNESS [None]
  - ERYTHEMA [None]
  - INJURY [None]
  - RHEUMATOID ARTHRITIS [None]
  - PAIN IN EXTREMITY [None]
